FAERS Safety Report 7655341-1 (Version None)
Quarter: 2011Q3

REPORT INFORMATION
  Report Type: 
  Country: None (occurrence: None)
  Receive Date: 20110801
  Receipt Date: 20110718
  Transmission Date: 20111222
  Serious: Yes (Death, Hospitalization, Other)
  Sender: FDA-Public Use
  Company Number: AUR-APL-2010-03175

PATIENT
  Age: 61 Year
  Sex: Male
  Weight: 140 kg

DRUGS (2)
  1. METFORMIN HCL [Suspect]
     Indication: TYPE 2 DIABETES MELLITUS
  2. GLIMEPIRIDE [Concomitant]

REACTIONS (12)
  - CARDIAC ARREST [None]
  - MULTI-ORGAN FAILURE [None]
  - HYPOTHERMIA [None]
  - VENTRICULAR TACHYCARDIA [None]
  - PULMONARY CONGESTION [None]
  - LEFT VENTRICULAR HYPERTROPHY [None]
  - RESPIRATORY ARREST [None]
  - LOSS OF CONSCIOUSNESS [None]
  - LACTIC ACIDOSIS [None]
  - VENTRICULAR FIBRILLATION [None]
  - LUNG INFILTRATION [None]
  - CONTINUOUS HAEMODIAFILTRATION [None]
